FAERS Safety Report 10079428 (Version 2)
Quarter: 2014Q2

REPORT INFORMATION
  Report Type: Report from Study
  Country: US (occurrence: US)
  Receive Date: 20140415
  Receipt Date: 20140509
  Transmission Date: 20141212
  Serious: Yes (Hospitalization)
  Sender: FDA-Public Use
  Company Number: PHEH2014US007347

PATIENT
  Age: 30 Year
  Sex: Female

DRUGS (3)
  1. GILENYA [Suspect]
     Indication: RELAPSING-REMITTING MULTIPLE SCLEROSIS
     Dosage: 0.5 MG, QD
     Route: 048
     Dates: start: 20120416, end: 20140309
  2. GILENYA [Suspect]
     Dosage: 0.5 MG, QD
     Route: 048
     Dates: start: 20140502
  3. AMPYRA [Concomitant]

REACTIONS (3)
  - Convulsion [Recovered/Resolved]
  - Urinary tract infection [Recovered/Resolved]
  - White blood cell count decreased [Recovered/Resolved]
